FAERS Safety Report 13335372 (Version 1)
Quarter: 2017Q1

REPORT INFORMATION
  Report Type: Spontaneous
  Country: US (occurrence: US)
  Receive Date: 20170314
  Receipt Date: 20170314
  Transmission Date: 20170428
  Serious: No
  Sender: FDA-Public Use
  Company Number: US-GALDERMA-US16006111

PATIENT
  Sex: Female

DRUGS (2)
  1. TRI-LUMA [Suspect]
     Active Substance: FLUOCINOLONE ACETONIDE\HYDROQUINONE\TRETINOIN
     Indication: SOLAR LENTIGO
     Route: 061
  2. UNSPECIFIED HAIR PRODUCTS [Concomitant]

REACTIONS (6)
  - Rash [Recovered/Resolved]
  - Erythema [Recovered/Resolved]
  - Accidental exposure to product [Recovered/Resolved]
  - Dermatitis [Recovered/Resolved]
  - Intentional product misuse [Recovered/Resolved]
  - Pruritus [Recovered/Resolved]
